FAERS Safety Report 17176965 (Version 1)
Quarter: 2019Q4

REPORT INFORMATION
  Report Type: Spontaneous
  Country: IN (occurrence: IN)
  Receive Date: 20191219
  Receipt Date: 20191219
  Transmission Date: 20200122
  Serious: Yes (Other)
  Sender: FDA-Public Use
  Company Number: IN-ROCHE-2493910

PATIENT
  Age: 28 Year
  Sex: Female

DRUGS (2)
  1. ACTEMRA [Suspect]
     Active Substance: TOCILIZUMAB
     Indication: STILL^S DISEASE
     Route: 065
  2. MYCOPHENOLATE MOFETIL. [Suspect]
     Active Substance: MYCOPHENOLATE MOFETIL
     Indication: STILL^S DISEASE
     Route: 065

REACTIONS (6)
  - Pruritus [Unknown]
  - Dizziness [Unknown]
  - Rash erythematous [Unknown]
  - Pyrexia [Unknown]
  - Dyspnoea [Unknown]
  - Off label use [Unknown]
